FAERS Safety Report 8559762-4 (Version None)
Quarter: 2012Q3

REPORT INFORMATION
  Report Type: 
  Country: None (occurrence: None)
  Receive Date: 20120727
  Receipt Date: 20120727
  Transmission Date: 20120928
  Serious: Yes (Hospitalization)
  Sender: FDA-Public Use
  Company Number: None

PATIENT
  Age: 37 Year
  Sex: Female
  Weight: 63.6 kg

DRUGS (12)
  1. BACTRIM [Concomitant]
  2. HYDROCODONE BITARTRATE AND ACETAMINOPHEN [Concomitant]
  3. CELLCEPT [Concomitant]
  4. DEXILANT [Concomitant]
  5. DIAZEPAM [Concomitant]
  6. NITROMIST [Concomitant]
  7. LIDOCAINE [Suspect]
     Indication: CATHETERISATION VENOUS
     Dosage: 0.1 MG ONCE IV  RECENT
     Route: 042
  8. ZOFRAN [Concomitant]
  9. DIPYRIDAMOLE [Concomitant]
  10. TEMAZEPAM [Concomitant]
  11. BISOPROLOL FUMARATE [Concomitant]
  12. SOLU-MEDROL [Concomitant]

REACTIONS (1)
  - CHEST PAIN [None]
